FAERS Safety Report 9125958 (Version 2)
Quarter: 2013Q2

REPORT INFORMATION
  Report Type: Spontaneous
  Country: US (occurrence: US)
  Receive Date: 20130228
  Receipt Date: 20130405
  Transmission Date: 20140414
  Serious: Yes (Life-Threatening, Hospitalization)
  Sender: FDA-Public Use
  Company Number: US-009507513-1302USA011944

PATIENT
  Sex: 0

DRUGS (5)
  1. DEXAMETHASONE [Suspect]
     Dosage: UNK
  2. BORTEZOMIB [Concomitant]
     Dosage: UNK
  3. LENALIDOMIDE [Concomitant]
     Dosage: UNK
  4. THALIDOMIDE [Concomitant]
  5. CYCLOPHOSPHAMIDE [Concomitant]

REACTIONS (2)
  - Fluid overload [Unknown]
  - Cardiac failure congestive [Unknown]
